FAERS Safety Report 21434744 (Version 2)
Quarter: 2023Q2

REPORT INFORMATION
  Report Type: Spontaneous
  Country: US (occurrence: US)
  Receive Date: 20221010
  Receipt Date: 20230421
  Transmission Date: 20230721
  Serious: No
  Sender: FDA-Public Use
  Company Number: US-SA-2022SA406098

PATIENT
  Age: 1 Day
  Sex: Male
  Weight: 3.175 kg

DRUGS (1)
  1. NEXVIAZYME [Suspect]
     Active Substance: AVALGLUCOSIDASE ALFA-NGPT
     Dosage: UNK
     Route: 064

REACTIONS (3)
  - Motor developmental delay [Unknown]
  - Rash [Unknown]
  - Foetal exposure timing unspecified [Unknown]

NARRATIVE: CASE EVENT DATE: 20220907
